FAERS Safety Report 16537942 (Version 1)
Quarter: 2019Q3

REPORT INFORMATION
  Report Type: Spontaneous
  Country: US (occurrence: US)
  Receive Date: 20190708
  Receipt Date: 20190708
  Transmission Date: 20191004
  Serious: No
  Sender: FDA-Public Use
  Company Number: US-SA-2019SA171480

PATIENT
  Age: 64 Year
  Sex: Male

DRUGS (2)
  1. LANTUS SOLOSTAR [Suspect]
     Active Substance: INSULIN GLARGINE
     Indication: TYPE 2 DIABETES MELLITUS
     Dosage: 100 U, QD
     Route: 065
  2. LYRICA [Concomitant]
     Active Substance: PREGABALIN

REACTIONS (2)
  - Glycosylated haemoglobin increased [Recovering/Resolving]
  - Incontinence [Recovered/Resolved]
